FAERS Safety Report 7581285-X (Version None)
Quarter: 2011Q2

REPORT INFORMATION
  Report Type: 
  Country: None (occurrence: None)
  Receive Date: 20110629
  Receipt Date: 20110620
  Transmission Date: 20111010
  Serious: Yes (Hospitalization)
  Sender: FDA-Public Use
  Company Number: SE-SANOFI-AVENTIS-2011SA039612

PATIENT
  Age: 75 Year
  Sex: Male

DRUGS (11)
  1. CAPECITABINE [Suspect]
     Route: 048
     Dates: start: 20110105, end: 20110602
  2. THERAPEUTIC RADIOPHARMACEUTICALS [Suspect]
     Dosage: DOSAGE 45 GY
     Route: 065
     Dates: start: 20110509, end: 20110603
  3. AMLODIPINE [Concomitant]
  4. OXALIPLATIN [Suspect]
     Dosage: DAILY DOSE: 520 MG 1 X PER 3 WEEK
     Route: 042
     Dates: start: 20110105, end: 20110602
  5. METOPROLOL TARTRATE [Concomitant]
     Dates: start: 20110301, end: 20110604
  6. LOPERAMIDE [Concomitant]
     Dates: start: 20110209
  7. SIMVASTATIN [Concomitant]
  8. EPIRUBICIN [Suspect]
     Route: 042
     Dates: start: 20110105, end: 20110602
  9. ENALAPRIL MALEATE [Concomitant]
  10. OMEPRAZOLE [Concomitant]
  11. PRIMPERAN TAB [Concomitant]
     Dates: start: 20110329

REACTIONS (3)
  - HYPOCALCAEMIA [None]
  - DYSPHAGIA [None]
  - MUCOSAL INFLAMMATION [None]
